FAERS Safety Report 15537197 (Version 1)
Quarter: 2018Q4

REPORT INFORMATION
  Report Type: Report from Study
  Country: IT (occurrence: IT)
  Receive Date: 20181022
  Receipt Date: 20181022
  Transmission Date: 20190205
  Serious: Yes (Hospitalization, Other)
  Sender: FDA-Public Use
  Company Number: IT-PFIZER INC-2018422877

PATIENT
  Age: 72 Year
  Sex: Male

DRUGS (7)
  1. CARBOPLATIN. [Suspect]
     Active Substance: CARBOPLATIN
     Indication: TRANSITIONAL CELL CARCINOMA
     Dosage: UNK
     Route: 042
     Dates: start: 20180412
  2. PARACETAMOL [Concomitant]
     Active Substance: ACETAMINOPHEN
     Indication: PYREXIA
     Dosage: 500 MG, AS NEEDED (PRN)
     Route: 048
     Dates: start: 20180624
  3. LEVOPRAID [LEVOSULPIRIDE] [Concomitant]
     Indication: NAUSEA
     Dosage: 25 MG, 3X/DAY (TID, EVERY 8 HOURS)
     Route: 048
     Dates: start: 20180620
  4. ZOFRAN [ONDANSETRON] [Concomitant]
     Indication: NAUSEA
     Dosage: 8 MG, AS NEEDED (PRN)
     Route: 048
     Dates: start: 20180418
  5. ATEZOLIZUMAB. [Suspect]
     Active Substance: ATEZOLIZUMAB
     Indication: TRANSITIONAL CELL CARCINOMA
     Dosage: 1200 MG, EVERY 3 WEEKS (Q3W)
     Route: 042
     Dates: start: 20180412
  6. GEMCITABINE HYDROCHLORIDE. [Suspect]
     Active Substance: GEMCITABINE HYDROCHLORIDE
     Indication: TRANSITIONAL CELL CARCINOMA
     Dosage: 1000 MG/M2, CYCLIC (DAY 1 AND DAY 8 OF EACH 21 DAY CYCLE)
     Route: 042
     Dates: start: 20180412
  7. DELTACORTENE [Concomitant]
     Active Substance: PREDNISONE
     Indication: PYREXIA
     Dosage: 10 MG, 1X/DAY (QD)
     Dates: start: 20180718

REACTIONS (1)
  - Pancytopenia [Unknown]

NARRATIVE: CASE EVENT DATE: 20180723
